FAERS Safety Report 10191774 (Version 1)
Quarter: 2014Q2

REPORT INFORMATION
  Report Type: Spontaneous
  Country: US (occurrence: None)
  Receive Date: 20140521
  Receipt Date: 20140521
  Transmission Date: 20141212
  Serious: Yes (Other)
  Sender: FDA-Public Use
  Company Number: 2014-US-005926

PATIENT
  Age: 79 Year
  Sex: Male

DRUGS (1)
  1. XYREM [Suspect]
     Indication: NARCOLEPSY
     Route: 048
     Dates: start: 201207, end: 2012

REACTIONS (8)
  - Neck surgery [None]
  - Cervical vertebral fracture [None]
  - Skin cancer [None]
  - Head injury [None]
  - Loss of consciousness [None]
  - Neuropathic ulcer [None]
  - Fall [None]
  - Somnambulism [None]
